FAERS Safety Report 6211530-4 (Version None)
Quarter: 2009Q2

REPORT INFORMATION
  Report Type: 
  Country: None (occurrence: None)
  Receive Date: 20090602
  Receipt Date: 20090520
  Transmission Date: 20091009
  Serious: Yes (Other)
  Sender: FDA-Public Use
  Company Number: CA-BAYER-200911583BCC

PATIENT
  Age: 55 Year
  Sex: Female
  Weight: 120 kg

DRUGS (3)
  1. ALEVE [Suspect]
     Indication: ARTHRALGIA
     Dosage: 4-6 LIQUID GELS/WEEK
     Dates: start: 20070101
  2. ALEVE (CAPLET) [Suspect]
     Indication: ARTHRALGIA
     Dosage: 4-6 CAPLETS/WEEK
     Route: 048
     Dates: start: 20070101
  3. ALEVE (UNSPECIFIED FORM) [Suspect]
     Indication: ARTHRALGIA

REACTIONS (1)
  - CONVULSION [None]
